FAERS Safety Report 6660395-5 (Version None)
Quarter: 2010Q1

REPORT INFORMATION
  Report Type: 
  Country: None (occurrence: None)
  Receive Date: 20100331
  Receipt Date: 20100322
  Transmission Date: 20100710
  Serious: Yes (Other)
  Sender: FDA-Public Use
  Company Number: GB-JNJFOC-20090906696

PATIENT
  Sex: Male

DRUGS (2)
  1. REMICADE [Suspect]
     Indication: RHEUMATOID ARTHRITIS
     Route: 042
  2. AMIODARONE HCL [Concomitant]
     Indication: VENTRICULAR ARRHYTHMIA

REACTIONS (2)
  - FALL [None]
  - VENTRICULAR ARRHYTHMIA [None]
